FAERS Safety Report 7392979-3 (Version None)
Quarter: 2011Q2

REPORT INFORMATION
  Report Type: 
  Country: None (occurrence: None)
  Receive Date: 20110404
  Receipt Date: 20110324
  Transmission Date: 20111010
  Serious: Yes (Other)
  Sender: FDA-Public Use
  Company Number: CA-ASTRAZENECA-2011SE14214

PATIENT
  Age: 958 Month
  Sex: Female

DRUGS (3)
  1. THYROXIN [Concomitant]
     Indication: THYROID DISORDER
  2. HYDROCHLOROTHIAZIDE [Concomitant]
     Route: 048
  3. ARIMIDEX [Suspect]
     Indication: BREAST CANCER
     Route: 048
     Dates: start: 20101101, end: 20110101

REACTIONS (2)
  - HYPOKINESIA [None]
  - CARPAL TUNNEL SYNDROME [None]
